FAERS Safety Report 7830152-2 (Version None)
Quarter: 2011Q4

REPORT INFORMATION
  Report Type: 
  Country: None (occurrence: None)
  Receive Date: 20111019
  Receipt Date: 20111006
  Transmission Date: 20120403
  Serious: Yes (Life-Threatening)
  Sender: FDA-Public Use
  Company Number: 2011-CA-0003

PATIENT
  Age: 74 Year
  Sex: Male

DRUGS (11)
  1. CALCIUM CARBONATE [Concomitant]
  2. DOCUSATE (DOCUSATE) [Concomitant]
  3. PROPOFOL [Suspect]
     Indication: PRODUCT USED FOR UNKNOWN INDICATION
     Dosage: 50 UNITS NOT SPECIFIED
  4. GLYBURIDE [Concomitant]
  5. SPIRONOLACTONE [Concomitant]
  6. METOPROLOL TARTRATE [Concomitant]
  7. SEVOFLURANE [Suspect]
     Indication: PRODUCT USED FOR UNKNOWN INDICATION
  8. RANITIDINE HYDROCHLORIDE [Concomitant]
  9. TYLENOL W/ CODEINE NO. 3 [Concomitant]
  10. FENTANYL CITRATE [Suspect]
     Indication: PRODUCT USED FOR UNKNOWN INDICATION
     Dosage: 250 UNITS
  11. CEFAZOLIN [Concomitant]

REACTIONS (1)
  - ENCEPHALOPATHY [None]
